FAERS Safety Report 21627872 (Version 1)
Quarter: 2022Q4

REPORT INFORMATION
  Report Type: Report from Study
  Country: DE (occurrence: DE)
  Receive Date: 20221122
  Receipt Date: 20221122
  Transmission Date: 20230113
  Serious: Yes (Hospitalization, Other)
  Sender: FDA-Public Use
  Company Number: DE-002147023-NVSC2022DE211824

PATIENT
  Age: 70 Year
  Sex: Female

DRUGS (8)
  1. FULVESTRANT [Suspect]
     Active Substance: FULVESTRANT
     Indication: Hormone receptor positive HER2 negative breast cancer
     Dosage: 500MG(DAILY DOSE)(OTHER,DAY 1,14,28, THEN Q4W)
     Route: 030
     Dates: start: 20190321
  2. EVEROLIMUS [Suspect]
     Active Substance: EVEROLIMUS
     Indication: Hormone receptor positive HER2 negative breast cancer
     Dosage: 5 MG, QD
     Route: 048
     Dates: start: 20220730
  3. EXEMESTANE [Suspect]
     Active Substance: EXEMESTANE
     Indication: Hormone receptor positive HER2 negative breast cancer
     Dosage: 25 MG, QD
     Route: 048
     Dates: start: 20220730
  4. KISQALI [Suspect]
     Active Substance: RIBOCICLIB
     Indication: Hormone receptor positive HER2 negative breast cancer
     Dosage: 400 MG, QD (SCHEME 21D INTAKE, 7D PAUSE)
     Route: 048
     Dates: start: 20211213, end: 20220429
  5. KISQALI [Suspect]
     Active Substance: RIBOCICLIB
     Dosage: 400 MG,QD (SCHEME 21D INTAKE, 7D PAUSE)
     Route: 048
     Dates: start: 20210430, end: 20211209
  6. KISQALI [Suspect]
     Active Substance: RIBOCICLIB
     Dosage: 600 MG,QD (SCHEME 21D INTAKE, 7D PAUSE)
     Route: 048
     Dates: start: 20190403, end: 20190430
  7. KISQALI [Suspect]
     Active Substance: RIBOCICLIB
     Dosage: 400 MG,QD (SCHEME 21D INTAKE, 7D PAUSE)
     Route: 048
     Dates: start: 20220506
  8. KISQALI [Suspect]
     Active Substance: RIBOCICLIB
     Dosage: 400 MG,QD (SCHEME 21D INTAKE, 7D PAUSE)
     Route: 048
     Dates: start: 20190501, end: 20210420

REACTIONS (2)
  - Flank pain [Unknown]
  - Pneumonitis [Unknown]

NARRATIVE: CASE EVENT DATE: 20220914
